FAERS Safety Report 12478342 (Version 1)
Quarter: 2016Q2

REPORT INFORMATION
  Report Type: Spontaneous
  Country: CH (occurrence: CH)
  Receive Date: 20160617
  Receipt Date: 20160617
  Transmission Date: 20160815
  Serious: Yes (Hospitalization)
  Sender: FDA-Public Use
  Company Number: CH-ASTRAZENECA-2016SE62205

PATIENT
  Age: 31007 Day
  Sex: Female

DRUGS (5)
  1. IRESSA [Suspect]
     Active Substance: GEFITINIB
     Indication: LUNG NEOPLASM MALIGNANT
     Route: 048
     Dates: start: 20160504, end: 20160508
  2. ARIXTRA [Concomitant]
     Active Substance: FONDAPARINUX SODIUM
     Route: 058
  3. TRANSTEC [Concomitant]
     Active Substance: BUPRENORPHINE
     Route: 062
  4. CONCOR [Concomitant]
     Active Substance: BISOPROLOL FUMARATE
     Route: 048
  5. LAXOBERON [Concomitant]
     Active Substance: SODIUM PICOSULFATE
     Route: 048

REACTIONS (4)
  - Purpura [Unknown]
  - Viral rash [Unknown]
  - Dermatitis bullous [Recovered/Resolved]
  - Drug eruption [Unknown]

NARRATIVE: CASE EVENT DATE: 20160508
